FAERS Safety Report 9443148 (Version 3)
Quarter: 2013Q4

REPORT INFORMATION
  Report Type: Spontaneous
  Country: US (occurrence: US)
  Receive Date: 20130806
  Receipt Date: 20131015
  Transmission Date: 20140711
  Serious: Yes (Hospitalization, Other)
  Sender: FDA-Public Use
  Company Number: US-JNJFOC-20130618645

PATIENT
  Age: 92 Year
  Sex: Male
  Weight: 79.38 kg

DRUGS (21)
  1. XARELTO [Suspect]
     Indication: CEREBROVASCULAR ACCIDENT PROPHYLAXIS
     Route: 048
     Dates: start: 20130627, end: 20130711
  2. XARELTO [Suspect]
     Indication: CEREBROVASCULAR ACCIDENT PROPHYLAXIS
     Route: 048
     Dates: start: 20130625, end: 20130625
  3. XARELTO [Suspect]
     Indication: ATRIAL FIBRILLATION
     Route: 048
     Dates: start: 20130627, end: 20130711
  4. XARELTO [Suspect]
     Indication: ATRIAL FIBRILLATION
     Route: 048
     Dates: start: 20130625, end: 20130625
  5. BABY ASPIRIN [Suspect]
     Indication: PRODUCT USED FOR UNKNOWN INDICATION
     Route: 065
  6. ASPIRIN [Suspect]
     Indication: PRODUCT USED FOR UNKNOWN INDICATION
     Route: 048
     Dates: start: 20071023
  7. COUMADIN [Concomitant]
     Route: 048
     Dates: start: 20130711
  8. CITALOPRAM HYDROBROMIDE [Concomitant]
     Dosage: 20 MG TAKING 0.5 TABLET DAILY
     Route: 048
     Dates: start: 20110526
  9. CENTRUM SILVER [Concomitant]
     Route: 048
     Dates: start: 20071023
  10. VITAMIN D [Concomitant]
     Indication: VITAMIN D DEFICIENCY
     Dosage: 1000 UNIT
     Route: 048
     Dates: start: 20130707
  11. VITAMIN D [Concomitant]
     Indication: VITAMIN D DEFICIENCY
     Route: 048
  12. CYANOCOBALAMIN [Concomitant]
     Route: 030
     Dates: start: 20081030
  13. ELIQUIS [Concomitant]
     Indication: CEREBROVASCULAR ACCIDENT
     Route: 048
     Dates: end: 20130624
  14. AVODART [Concomitant]
     Route: 048
  15. TESTIM [Concomitant]
     Dosage: 50 MG/5GM, APPLY ONE PACKET ONE TIME DAILY IN AM TO SKIN OF UPPER ARMS AND CHEST OR BACK
     Route: 062
     Dates: start: 20130605
  16. SIMVASTATIN [Concomitant]
     Dosage: AT BEDTIME
     Route: 048
     Dates: start: 20071116
  17. METOPROLOL SUCCINATE [Concomitant]
     Route: 048
     Dates: start: 20081231
  18. LISINOPRIL [Concomitant]
     Route: 048
     Dates: start: 20090105
  19. NIASPAN [Concomitant]
     Route: 048
     Dates: start: 20091001
  20. TAMSULOSIN HYDROCHLORIDE [Concomitant]
     Route: 048
     Dates: start: 20111020
  21. AVODART [Concomitant]
     Route: 048
     Dates: start: 20130118

REACTIONS (8)
  - Haematochezia [Recovered/Resolved]
  - International normalised ratio increased [Recovering/Resolving]
  - Prothrombin time prolonged [Recovering/Resolving]
  - Haematuria [Recovered/Resolved]
  - Fatigue [Unknown]
  - Anaemia [Recovering/Resolving]
  - Diarrhoea [Recovered/Resolved]
  - Treatment noncompliance [Unknown]
